FAERS Safety Report 12092469 (Version 2)
Quarter: 2016Q2

REPORT INFORMATION
  Report Type: Report from Study
  Country: DE (occurrence: DE)
  Receive Date: 20160219
  Receipt Date: 20160418
  Transmission Date: 20160815
  Serious: Yes (Hospitalization)
  Sender: FDA-Public Use
  Company Number: DE-ROCHE-1713366

PATIENT
  Age: 77 Year
  Sex: Female

DRUGS (13)
  1. PREDNISOLON [Concomitant]
     Active Substance: PREDNISOLONE
  2. NEBIVOLOL. [Concomitant]
     Active Substance: NEBIVOLOL
  3. ATORVASTATIN [Concomitant]
     Active Substance: ATORVASTATIN
  4. ADENURIC [Concomitant]
     Active Substance: FEBUXOSTAT
  5. AMLODIPIN [Concomitant]
     Active Substance: AMLODIPINE BESYLATE
  6. DEKRISTOL [Concomitant]
     Active Substance: CHOLECALCIFEROL
  7. TOCILIZUMAB [Suspect]
     Active Substance: TOCILIZUMAB
     Indication: RHEUMATOID ARTHRITIS
     Route: 058
  8. CANDESARTAN [Concomitant]
     Active Substance: CANDESARTAN
  9. ISOKET [Concomitant]
     Active Substance: ISOSORBIDE DINITRATE
  10. NEPRESOL [Concomitant]
     Active Substance: DIHYDRALAZINE SULFATE
  11. PANTOZOL [Concomitant]
     Active Substance: PANTOPRAZOLE SODIUM
  12. FALITHROM [Concomitant]
     Active Substance: PHENPROCOUMON
  13. TOREM [Concomitant]
     Active Substance: TORSEMIDE

REACTIONS (2)
  - Hypertension [Unknown]
  - Diabetes mellitus [Unknown]

NARRATIVE: CASE EVENT DATE: 201601
